FAERS Safety Report 16509228 (Version 1)
Quarter: 2019Q3

REPORT INFORMATION
  Report Type: Spontaneous
  Country: US (occurrence: US)
  Receive Date: 20190701
  Receipt Date: 20190701
  Transmission Date: 20191004
  Serious: Yes (Hospitalization)
  Sender: FDA-Public Use
  Company Number: None

PATIENT
  Age: 79 Year

DRUGS (1)
  1. IBANDRONATE [Suspect]
     Active Substance: IBANDRONATE SODIUM
     Dosage: ?          OTHER FREQUENCY:MONTHLY;?
     Route: 048
     Dates: start: 20180728, end: 20190528

REACTIONS (3)
  - Gastrointestinal haemorrhage [None]
  - Gastritis [None]
  - Treatment noncompliance [None]

NARRATIVE: CASE EVENT DATE: 20190528
